FAERS Safety Report 6806075-4 (Version None)
Quarter: 2010Q2

REPORT INFORMATION
  Report Type: 
  Country: None (occurrence: None)
  Receive Date: 20100629
  Receipt Date: 20080128
  Transmission Date: 20101027
  Serious: No
  Sender: FDA-Public Use
  Company Number: US-PFIZER INC-2007100210

PATIENT
  Sex: Male
  Weight: 73.6 kg

DRUGS (5)
  1. VIAGRA [Suspect]
     Indication: ERECTILE DYSFUNCTION
     Route: 048
     Dates: start: 20010101
  2. DIGOXIN [Concomitant]
  3. LIPITOR [Concomitant]
  4. CAPTOPRIL [Concomitant]
  5. NITROGLYCERIN [Concomitant]
     Route: 060

REACTIONS (3)
  - BLOOD PRESSURE DECREASED [None]
  - CHEST DISCOMFORT [None]
  - MUSCLE STRAIN [None]
